FAERS Safety Report 5959036-1 (Version None)
Quarter: 2008Q4

REPORT INFORMATION
  Report Type: 
  Country: None (occurrence: None)
  Receive Date: 20081118
  Receipt Date: 20081118
  Transmission Date: 20090506
  Serious: Yes (Other)
  Sender: FDA-Public Use
  Company Number: None

PATIENT
  Age: 49 Year
  Sex: Female
  Weight: 120.2032 kg

DRUGS (4)
  1. PERCOCET [Suspect]
     Indication: BACK PAIN
     Dosage: ONCE Q4-6HR PO
     Route: 048
     Dates: start: 20080828
  2. PERCOCET [Suspect]
     Indication: FIBROMYALGIA
     Dosage: ONCE Q4-6HR PO
     Route: 048
     Dates: start: 20080828
  3. LEXAPRO [Concomitant]
  4. SOMA [Concomitant]

REACTIONS (4)
  - DYSPNOEA [None]
  - FACE OEDEMA [None]
  - LIP SWELLING [None]
  - PRODUCT QUALITY ISSUE [None]
